FAERS Safety Report 24751525 (Version 1)
Quarter: 2024Q4

REPORT INFORMATION
  Report Type: Spontaneous
  Country: US (occurrence: US)
  Receive Date: 20241219
  Receipt Date: 20241219
  Transmission Date: 20250114
  Serious: No
  Sender: REVANCE THERAPEUTICS
  Company Number: US-REVANCE THERAPEUTICS INC.-US-REV-2024-000580

PATIENT

DRUGS (1)
  1. DAXIBOTULINUMTOXIN A-LANM [Suspect]
     Active Substance: DAXIBOTULINUMTOXIN A-LANM
     Indication: Skin wrinkling
     Dosage: TOTAL100 UNITS: GLABELLA (36 U), FOREHEAD (38 U), CROWS FEET (12U/12U), RIGHT BROW LIFT (2 U)
     Route: 065
     Dates: start: 20240913

REACTIONS (8)
  - Sinusitis [Unknown]
  - Brow ptosis [Recovering/Resolving]
  - Ocular discomfort [Recovering/Resolving]
  - Respiratory tract infection viral [Recovering/Resolving]
  - Periorbital swelling [Recovered/Resolved]
  - Drug ineffective for unapproved indication [Unknown]
  - Underdose [Unknown]
  - Off label use [Unknown]

NARRATIVE: CASE EVENT DATE: 20240913
